FAERS Safety Report 5339636-2 (Version None)
Quarter: 2007Q2

REPORT INFORMATION
  Report Type: 
  Country: None (occurrence: None)
  Receive Date: 20070525
  Receipt Date: 20070518
  Transmission Date: 20071010
  Serious: Yes (Hospitalization)
  Sender: FDA-Public Use
  Company Number: 2007BI009168

PATIENT
  Age: 64 Year
  Sex: Male
  Weight: 79.8331 kg

DRUGS (9)
  1. AVONEX [Suspect]
     Indication: MULTIPLE SCLEROSIS
     Dosage: 30 UG;QW;IM
     Route: 030
     Dates: start: 20050101
  2. ECOTRIN [Concomitant]
  3. BUMEX [Concomitant]
  4. POTASSIUM ACETATE [Concomitant]
  5. VISTARIL [Concomitant]
  6. LANOXIN [Concomitant]
  7. ALDACTONE [Concomitant]
  8. COUMADIN [Concomitant]
  9. TOPROL-XL [Concomitant]

REACTIONS (3)
  - HEARING IMPAIRED [None]
  - MEMORY IMPAIRMENT [None]
  - RENAL DISORDER [None]
